FAERS Safety Report 8791096 (Version 1)
Quarter: 2012Q4

REPORT INFORMATION
  Report Type: Spontaneous
  Country: GB (occurrence: None)
  Receive Date: 20120911
  Receipt Date: 20120911
  Transmission Date: 20130627
  Serious: Yes (Hospitalization, Disabling)
  Sender: FDA-Public Use
  Company Number: 2012P1055871

PATIENT
  Age: 23 Year
  Sex: Female

DRUGS (2)
  1. PYRIMETHAMINE [Suspect]
     Route: 048
     Dates: start: 20120723
  2. SULPHADIAZINE [Suspect]
     Route: 048
     Dates: start: 20120723

REACTIONS (2)
  - Rash generalised [None]
  - Eosinophil count increased [None]
